FAERS Safety Report 4890914-0 (Version None)
Quarter: 2006Q1

REPORT INFORMATION
  Report Type: 
  Country: None (occurrence: None)
  Receive Date: 20060125
  Receipt Date: 20060117
  Transmission Date: 20060701
  Serious: Yes (Other)
  Sender: FDA-Public Use
  Company Number: PHRM2006FR00543

PATIENT
  Age: 60 Year
  Sex: Male

DRUGS (2)
  1. LIPANTHYL ^FOURNIER^ [Concomitant]
     Indication: LOW DENSITY LIPOPROTEIN INCREASED
     Route: 048
  2. COTAREG [Suspect]
     Indication: HYPERTENSION
     Dosage: 1 DF, QD
     Route: 048
     Dates: start: 20000101

REACTIONS (2)
  - MYELOCYTE PRESENT [None]
  - WHITE BLOOD CELL COUNT INCREASED [None]
